FAERS Safety Report 4327621-9 (Version None)
Quarter: 2004Q1

REPORT INFORMATION
  Report Type: 
  Country: None (occurrence: None)
  Receive Date: 20040325
  Receipt Date: 20040322
  Transmission Date: 20041129
  Serious: Yes (Life-Threatening, Hospitalization)
  Sender: FDA-Public Use
  Company Number: 04H-087-0254168-00

PATIENT
  Age: 60 Year
  Sex: Male

DRUGS (1)
  1. MEPIVACAINE HYDROCHLORIDE INJECTION (CARBOCAINE HYDROCHLORIDE [Suspect]
     Indication: ANAESTHESIA
     Dosage: 8 ML, 1%, ONCE, INJECTION

REACTIONS (12)
  - ANAESTHETIC COMPLICATION [None]
  - BLOOD PRESSURE INCREASED [None]
  - DYSPNOEA [None]
  - HAEMATOMA [None]
  - HAEMOGLOBIN DECREASED [None]
  - HOARSENESS [None]
  - HORNER'S SYNDROME [None]
  - LARYNGEAL OEDEMA [None]
  - LOCALISED OEDEMA [None]
  - NECK PAIN [None]
  - POST PROCEDURAL COMPLICATION [None]
  - RESPIRATORY RATE INCREASED [None]
